FAERS Safety Report 18532291 (Version 1)
Quarter: 2020Q4

REPORT INFORMATION
  Report Type: Spontaneous
  Country: DE (occurrence: DE)
  Receive Date: 20201123
  Receipt Date: 20201123
  Transmission Date: 20210114
  Serious: Yes (Life-Threatening, Other)
  Sender: FDA-Public Use
  Company Number: DE-AUROBINDO-AUR-APL-2020-057317

PATIENT

DRUGS (15)
  1. IFOSFAMIDE. [Suspect]
     Active Substance: IFOSFAMIDE
     Dosage: 800 MILLIGRAM/SQ. METER (800 MG/M2, DAY 2-4, CYCLE 5 (1 CYCLE = 2 WEEKS))
     Route: 042
  2. ACICLOVIR [Suspect]
     Active Substance: ACYCLOVIR
     Indication: PRODUCT USED FOR UNKNOWN INDICATION
     Dosage: UNK (RECEIVED AT EACH CYCLE)
     Route: 065
  3. METHOTREXATE. [Suspect]
     Active Substance: METHOTREXATE
     Dosage: 4000 MILLIGRAM/SQ. METER (4000 MG/M2, DAY 1, CYCLE 5 (1 CYCLE = 2 WEEKS))
     Route: 042
  4. SULFAMETHOXAZOLE+TRIMETHOPRIM [Suspect]
     Active Substance: SULFAMETHOXAZOLE\TRIMETHOPRIM
     Indication: PRODUCT USED FOR UNKNOWN INDICATION
     Dosage: UNK (RECEIVED AT EACH CYCLE)
     Route: 065
  5. RITUXIMAB. [Suspect]
     Active Substance: RITUXIMAB
     Indication: CENTRAL NERVOUS SYSTEM LYMPHOMA
     Dosage: 375 MILLIGRAM/SQ. METER (375 MG/M2, DAY 0, CYCLE 1-3 (1 CYCLE = 2 WEEKS))
     Route: 042
  6. CYTARABINE. [Suspect]
     Active Substance: CYTARABINE
     Dosage: 10 MILLIGRAM (10 MG, DAY 6, CYCLE 4+6 (1 CYCLE = 3 WEEKS))
     Route: 065
  7. METHOTREXATE. [Suspect]
     Active Substance: METHOTREXATE
     Dosage: 2.5 MILLIGRAM (2.5 MG, DAY 2-4, CYCLE 5 (1 CYCLE = 2 WEEKS))
     Route: 065
  8. CYTARABINE. [Suspect]
     Active Substance: CYTARABINE
     Indication: CENTRAL NERVOUS SYSTEM LYMPHOMA
     Dosage: 3000 MILLIGRAM/SQ. METER (3000 MG/M2, DAY 1-2, CYCLE 4+6 (1 CYCLE = 3 WEEKS))
     Route: 042
  9. CYTARABINE. [Suspect]
     Active Substance: CYTARABINE
     Dosage: 10 MILLIGRAM (10 MG, DAY 5, CYCLE 5 (1 CYCLE = 2 WEEKS))
     Route: 065
  10. METHOTREXATE. [Suspect]
     Active Substance: METHOTREXATE
     Indication: CENTRAL NERVOUS SYSTEM LYMPHOMA
     Dosage: 4000 MILLIGRAM/SQ. METER (4000 MG/M2, DAY 1, CYCLE 1-3 (1 CYCLE = 2 WEEKS))
     Route: 042
  11. PREDNISOLONE. [Suspect]
     Active Substance: PREDNISOLONE
     Dosage: 3 MILLIGRAM (3 MG, DAY 3-5, CYCLE 4+6 (1 CYCLE = 3 WEEKS), ICV/INTRACEREBROVENTRICULAR ROUTE)
     Route: 065
  12. GRANULOCYTE COLONY STIMULATING FACTOR [Suspect]
     Active Substance: GRANULOCYTE COLONY-STIMULATING FACTOR NOS
     Indication: PROPHYLAXIS
     Dosage: UNK (RECEIVED AT EACH CYCLE)
     Route: 065
  13. IFOSFAMIDE. [Suspect]
     Active Substance: IFOSFAMIDE
     Indication: CENTRAL NERVOUS SYSTEM LYMPHOMA
     Dosage: 800 MILLIGRAM/SQ. METER (800 MG/M2, DAY 2-4, CYCLE 1-3 (1 CYCLE = 2 WEEKS))
     Route: 042
  14. METHOTREXATE. [Suspect]
     Active Substance: METHOTREXATE
     Dosage: 2.5 MILLIGRAM (2.5 MG, DAY 3-5, CYCLE 4+6 (1 CYCLE = 3 WEEKS))
     Route: 065
  15. PREDNISOLONE. [Suspect]
     Active Substance: PREDNISOLONE
     Indication: CENTRAL NERVOUS SYSTEM LYMPHOMA
     Dosage: 3 MILLIGRAM (3 MG, DAY 2-4, CYCLE 5 (1 CYCLE = 2 WEEKS), ICV/INTRACEREBROVENTRICULAR ROUTE)
     Route: 065

REACTIONS (1)
  - Thrombosis [Unknown]
